FAERS Safety Report 6871194-3 (Version None)
Quarter: 2010Q3

REPORT INFORMATION
  Report Type: 
  Country: None (occurrence: None)
  Receive Date: 20100723
  Receipt Date: 20100713
  Transmission Date: 20110219
  Serious: Yes (Other)
  Sender: FDA-Public Use
  Company Number: CO-ROCHE-714948

PATIENT
  Sex: Female

DRUGS (3)
  1. BONIVA [Suspect]
     Indication: OSTEOPOROSIS
     Dosage: ROUTE: PO
     Route: 048
     Dates: start: 20090307, end: 20100601
  2. ACETAMINOPHEN [Concomitant]
     Indication: PAIN
     Dosage: FREQUENCY: QD
     Route: 048
  3. LEFLUNOMIDE [Concomitant]
     Dosage: FREQUENCY: QD
     Route: 048

REACTIONS (1)
  - PULMONARY TUBERCULOSIS [None]
